FAERS Safety Report 6302784-4 (Version None)
Quarter: 2009Q3

REPORT INFORMATION
  Report Type: 
  Country: None (occurrence: None)
  Receive Date: 20090810
  Receipt Date: 20090805
  Transmission Date: 20100115
  Serious: Yes (Other)
  Sender: FDA-Public Use
  Company Number: ES-BAYER-200927127GPV

PATIENT
  Age: 39 Year
  Sex: Female
  Weight: 66 kg

DRUGS (6)
  1. ADALAT [Suspect]
     Indication: HYPERTENSION
     Route: 048
     Dates: start: 20060101
  2. NAPROXENO [Suspect]
     Indication: NEUROPATHY PERIPHERAL
     Route: 048
     Dates: start: 20060101
  3. LORAZEPAM [Suspect]
     Indication: ANXIETY
     Route: 048
     Dates: start: 20060101
  4. ZALDIAR [Suspect]
     Indication: NEUROPATHY PERIPHERAL
     Route: 048
     Dates: start: 20060101
  5. RABEPRAZOLE SODIUM [Suspect]
     Indication: DRUG USE FOR UNKNOWN INDICATION
     Route: 048
     Dates: start: 20060101
  6. HIDROCLOROTIAZIDA [Suspect]
     Indication: HYPERTENSION
     Route: 048
     Dates: start: 20060101

REACTIONS (1)
  - ABORTION MISSED [None]
